FAERS Safety Report 4971136-1 (Version None)
Quarter: 2006Q1

REPORT INFORMATION
  Report Type: 
  Country: None (occurrence: None)
  Receive Date: 20060223
  Receipt Date: 20050720
  Transmission Date: 20060701
  Serious: Yes (Hospitalization)
  Sender: FDA-Public Use
  Company Number: HQWYE358821JUL05

PATIENT
  Age: 41 Year
  Sex: Male

DRUGS (1)
  1. EFFEXOR [Suspect]
     Indication: MAJOR DEPRESSION
     Dosage: ORAL
     Route: 048

REACTIONS (1)
  - MANIA [None]
